FAERS Safety Report 5226738-4 (Version None)
Quarter: 2007Q1

REPORT INFORMATION
  Report Type: 
  Country: None (occurrence: None)
  Receive Date: 20070201
  Receipt Date: 20061108
  Transmission Date: 20070707
  Serious: Yes (Other)
  Sender: FDA-Public Use
  Company Number: US-MERCK-0611USA02963

PATIENT
  Age: 62 Year
  Sex: Female

DRUGS (2)
  1. VYTORIN [Suspect]
     Indication: BLOOD CHOLESTEROL INCREASED
     Route: 048
     Dates: start: 20060801, end: 20060101
  2. ACTONEL [Concomitant]
     Route: 065

REACTIONS (1)
  - IDIOPATHIC THROMBOCYTOPENIC PURPURA [None]
